FAERS Safety Report 9497539 (Version 3)
Quarter: 2013Q4

REPORT INFORMATION
  Report Type: Spontaneous
  Country: CA (occurrence: None)
  Receive Date: 20130830
  Receipt Date: 20131205
  Transmission Date: 20140711
  Serious: Yes (Hospitalization, Other)
  Sender: FDA-Public Use
  Company Number: CA-012811

PATIENT
  Age: 82 Year
  Sex: Male

DRUGS (6)
  1. FIRMAGON [Suspect]
     Indication: PROSTATE CANCER
     Route: 058
     Dates: start: 201306, end: 201306
  2. CRESTOR [Concomitant]
  3. METOPROLOL [Concomitant]
  4. RAMIPRIL [Concomitant]
  5. VITAMIN B3 [Concomitant]
  6. NATURAL VITAMIN D [Concomitant]

REACTIONS (6)
  - Hip fracture [None]
  - Dizziness [None]
  - Fall [None]
  - Dizziness [None]
  - Haemoglobin decreased [None]
  - Lung neoplasm malignant [None]
